FAERS Safety Report 8399027-7 (Version None)
Quarter: 2012Q2

REPORT INFORMATION
  Report Type: 
  Country: None (occurrence: None)
  Receive Date: 20120531
  Receipt Date: 20120522
  Transmission Date: 20120825
  Serious: Yes (Other)
  Sender: FDA-Public Use
  Company Number: JP-ELI_LILLY_AND_COMPANY-JP201201006168

PATIENT
  Age: 72 Year
  Sex: Female
  Weight: 52 kg

DRUGS (6)
  1. APIDRA [Concomitant]
     Dosage: 6 IU, TID
     Route: 058
     Dates: start: 20101222
  2. LANTUS [Concomitant]
     Dosage: 6 IU, QD
     Route: 058
     Dates: start: 20101222
  3. TS 1                                    /JPN/ [Concomitant]
     Indication: PANCREATIC CARCINOMA STAGE IV
     Dosage: 500 MG, BID
     Route: 048
     Dates: start: 20101224, end: 20120105
  4. AMLODIPINE [Concomitant]
     Dosage: 5 MG, QD
     Route: 048
  5. GEMZAR [Suspect]
     Indication: PANCREATIC CARCINOMA STAGE IV
     Dosage: 1400 MG, OTHER
     Route: 042
     Dates: start: 20101224, end: 20120105
  6. TS 1                                    /JPN/ [Concomitant]
     Dosage: UNK
     Route: 048
     Dates: start: 20120119, end: 20120119

REACTIONS (2)
  - SURGERY [None]
  - INTERSTITIAL LUNG DISEASE [None]
